FAERS Safety Report 7939033 (Version 4)
Quarter: 2013Q2

REPORT INFORMATION
  Report Type: Spontaneous
  Country: US (occurrence: US)
  Receive Date: 20110510
  Receipt Date: 20130517
  Transmission Date: 20140414
  Serious: Yes (Hospitalization, Other)
  Sender: FDA-Public Use
  Company Number: US-ASTRAZENECA-2011SE25435

PATIENT
  Age: 83 Year
  Sex: Female

DRUGS (3)
  1. SYMBICORT PMDI [Suspect]
     Route: 055
  2. SYMBICORT PMDI [Suspect]
     Route: 055
  3. NEXIUM [Suspect]
     Route: 048

REACTIONS (6)
  - Lung neoplasm malignant [Unknown]
  - Malignant melanoma of sites other than skin [Unknown]
  - Pneumonia [Unknown]
  - Disease recurrence [Unknown]
  - Malaise [Unknown]
  - Drug dose omission [Unknown]
